FAERS Safety Report 25211862 (Version 2)
Quarter: 2025Q3

REPORT INFORMATION
  Report Type: Spontaneous
  Country: TW (occurrence: TW)
  Receive Date: 20250418
  Receipt Date: 20250810
  Transmission Date: 20251021
  Serious: Yes (Hospitalization)
  Sender: ALEXION PHARMACEUTICALS
  Company Number: TW-ASTRAZENECA-202504ASI013048TW

PATIENT
  Age: 54 Year
  Sex: Female
  Weight: 86.7 kg

DRUGS (4)
  1. NEXIUM [Suspect]
     Active Substance: ESOMEPRAZOLE MAGNESIUM
     Route: 065
     Dates: start: 20250313, end: 20250315
  2. CATAFLAM [Suspect]
     Active Substance: DICLOFENAC POTASSIUM
     Route: 065
     Dates: start: 20250312, end: 20250317
  3. OXACILLIN [Suspect]
     Active Substance: OXACILLIN SODIUM
     Indication: Bacterial infection
     Route: 065
     Dates: start: 20250310, end: 20250317
  4. CLINDAMYCIN HYDROCHLORIDE [Suspect]
     Active Substance: CLINDAMYCIN HYDROCHLORIDE
     Route: 065
     Dates: start: 20250310, end: 20250316

REACTIONS (3)
  - Rash [Recovered/Resolved]
  - Pruritus [Recovered/Resolved]
  - Skin swelling [Recovered/Resolved]

NARRATIVE: CASE EVENT DATE: 20250315
